FAERS Safety Report 9982758 (Version 1)
Quarter: 2014Q1

REPORT INFORMATION
  Report Type: Report from Study
  Country: US (occurrence: US)
  Receive Date: 20140307
  Receipt Date: 20140307
  Transmission Date: 20141002
  Serious: No
  Sender: FDA-Public Use
  Company Number: US-ABBVIE-13P-163-1181009-00

PATIENT
  Sex: Male
  Weight: 104.42 kg

DRUGS (3)
  1. HUMIRA [Suspect]
     Indication: CROHN^S DISEASE
     Dosage: LOADING DOSE
     Dates: start: 201010, end: 201010
  2. HUMIRA [Suspect]
     Dosage: TWO WEEKS AFTER INITIAL DOSE
     Dates: start: 201010, end: 201010
  3. HUMIRA [Suspect]
     Dates: start: 201010

REACTIONS (1)
  - Injection site pain [Recovered/Resolved]
